FAERS Safety Report 6211328-7 (Version None)
Quarter: 2009Q2

REPORT INFORMATION
  Report Type: 
  Country: None (occurrence: None)
  Receive Date: 20090528
  Receipt Date: 20090520
  Transmission Date: 20091009
  Serious: Yes (Death, Hospitalization)
  Sender: FDA-Public Use
  Company Number: THQ2009A01070

PATIENT
  Age: 87 Year
  Sex: Female

DRUGS (15)
  1. LANSOPRAZOLE [Suspect]
     Dosage: 60 MG (30 MG, 2 - 2) PER ORAL
     Route: 048
     Dates: start: 20050816, end: 20050920
  2. CEFTRIAXONE [Suspect]
     Dosage: 2250 MG (750 MG, 3 IN 1 D) INTRAVENOUS
     Route: 042
     Dates: start: 20050823, end: 20050830
  3. CIPROFLOXACIN [Suspect]
     Dosage: 1000 MG (500 MG, 2 IN 1 D) PER ORAL
     Route: 048
     Dates: start: 20050915, end: 20050922
  4. SERETIDE (SALMETEROL, FLUTICASONE) [Concomitant]
  5. SODIUM BICARBONATE [Concomitant]
  6. ASPIRIN [Concomitant]
  7. FLUCONAZOLE [Concomitant]
  8. CITALOPRAM HYDROBROMIDE [Concomitant]
  9. CO-AMILOFRUSE (FUROSEMIDE, AMILORIDE HYDROCHLORIDE) [Concomitant]
  10. DILTIAZEM [Concomitant]
  11. ISOSORBIDE MONONITRATE [Concomitant]
  12. SPIRIVA [Concomitant]
  13. POTASSIUM CHLORIDE [Concomitant]
  14. IPRATROPIUM BROMIDE [Concomitant]
  15. CO-CODAMOL (CODEINE PHOPHATE, PARACETAMOL) [Concomitant]

REACTIONS (4)
  - BACTERAEMIA [None]
  - BURKHOLDERIA CEPACIA INFECTION [None]
  - NOSOCOMIAL INFECTION [None]
  - TRANSMISSION OF AN INFECTIOUS AGENT VIA A MEDICINAL PRODUCT [None]
